FAERS Safety Report 23225351 (Version 1)
Quarter: 2023Q4

REPORT INFORMATION
  Report Type: Report from Study
  Country: US (occurrence: US)
  Receive Date: 20231124
  Receipt Date: 20231124
  Transmission Date: 20240110
  Serious: Yes (Hospitalization, Other)
  Sender: FDA-Public Use
  Company Number: US-BAXTER-2023BAX036334

PATIENT
  Age: 69 Year
  Sex: Female
  Weight: 67 kg

DRUGS (5)
  1. DOXIL [Suspect]
     Active Substance: DOXORUBICIN HYDROCHLORIDE
     Indication: Breast cancer female
     Dosage: 56.7 MG (30 MG/M2), CYCLIC (EVERY 4 WEEKS), ONGOING
     Route: 042
     Dates: start: 20231006
  2. DOXIL [Suspect]
     Active Substance: DOXORUBICIN HYDROCHLORIDE
     Dosage: UNK, MOST RECENT DOSE BEFORE THE EVENT
     Route: 065
     Dates: start: 20231103
  3. BINIMETINIB [Suspect]
     Active Substance: BINIMETINIB
     Indication: Breast cancer female
     Dosage: 45 MG, 2X/DAY
     Route: 048
     Dates: start: 20230720, end: 20231107
  4. AVELUMAB [Suspect]
     Active Substance: AVELUMAB
     Indication: Breast cancer female
     Dosage: 720 MG (10 MG/KG), CYCLIC (EVERY 2 WEEKS), ONGOING
     Route: 042
     Dates: start: 20230804
  5. AVELUMAB [Suspect]
     Active Substance: AVELUMAB
     Dosage: UNK, MOST RECENT DOSE BEFORE THE EVENT
     Route: 065
     Dates: start: 20230901

REACTIONS (1)
  - Respiratory failure [Recovered/Resolved]

NARRATIVE: CASE EVENT DATE: 20231107
